FAERS Safety Report 9498273 (Version 1)
Quarter: 2013Q3

REPORT INFORMATION
  Report Type: Spontaneous
  Country: FR (occurrence: FR)
  Receive Date: 20130904
  Receipt Date: 20130904
  Transmission Date: 20140515
  Serious: Yes (Other)
  Sender: FDA-Public Use
  Company Number: FR-SANOFI-AVENTIS-2013SA087926

PATIENT
  Sex: Male

DRUGS (2)
  1. STILNOX [Suspect]
     Indication: INSOMNIA
     Route: 048
     Dates: start: 201305
  2. STILNOX [Suspect]
     Indication: INSOMNIA
     Route: 048

REACTIONS (3)
  - Cognitive disorder [Unknown]
  - Dependence [Unknown]
  - Overdose [Unknown]
